FAERS Safety Report 4744579-9 (Version None)
Quarter: 2005Q3

REPORT INFORMATION
  Report Type: 
  Country: None (occurrence: None)
  Receive Date: 20050809
  Receipt Date: 20050726
  Transmission Date: 20060218
  Serious: Yes (Other)
  Sender: FDA-Public Use
  Company Number: 2005BH000897

PATIENT
  Sex: Male

DRUGS (1)
  1. RECOMBINATE [Suspect]
     Indication: PROPHYLAXIS
     Dosage: 10 IU/KG; 3X A WEEK
     Dates: start: 20040915

REACTIONS (2)
  - HIV TEST FALSE POSITIVE [None]
  - SEROCONVERSION TEST POSITIVE [None]
